FAERS Safety Report 4955592-0 (Version None)
Quarter: 2006Q1

REPORT INFORMATION
  Report Type: 
  Country: None (occurrence: None)
  Receive Date: 20060328
  Receipt Date: 20051123
  Transmission Date: 20060701
  Serious: Yes (Hospitalization)
  Sender: FDA-Public Use
  Company Number: US-MERCK-0511USA04067

PATIENT
  Age: 58 Year
  Sex: Female
  Weight: 64 kg

DRUGS (17)
  1. VIOXX [Suspect]
     Indication: RHEUMATOID ARTHRITIS
     Route: 048
     Dates: start: 20000707, end: 20000901
  2. VIOXX [Suspect]
     Route: 048
     Dates: start: 20021227, end: 20040901
  3. ACETAMINOPHEN AND CODEINE [Concomitant]
     Route: 065
  4. ASPIRIN [Concomitant]
     Route: 065
  5. ACETAMINOPHEN AND HYDROCODONE BITARTRATE [Concomitant]
     Route: 065
  6. LABETALOL HYDROCHLORIDE [Concomitant]
     Route: 065
  7. LISINOPRIL [Concomitant]
     Route: 065
  8. HYDROCHLOROTHIAZIDE AND LISINOPRIL [Concomitant]
     Route: 065
  9. LOTENSIN [Concomitant]
     Route: 065
  10. METOCLOPRAMIDE [Concomitant]
     Route: 065
  11. NADOLOL [Concomitant]
     Route: 065
  12. NITROQUICK [Concomitant]
     Route: 065
  13. PLAVIX [Concomitant]
     Route: 065
  14. PREDNISONE [Concomitant]
     Route: 065
  15. PROTONIX [Concomitant]
     Route: 065
  16. TOPROL-XL [Concomitant]
     Route: 065
  17. METHOTREXATE [Concomitant]
     Route: 065

REACTIONS (31)
  - ABDOMINAL PAIN UPPER [None]
  - ANGINA PECTORIS [None]
  - ANXIETY [None]
  - ARTERIAL THROMBOSIS LIMB [None]
  - ARTERIOSCLEROSIS [None]
  - BACTERIAL INFECTION [None]
  - BLOOD CHOLESTEROL INCREASED [None]
  - BLOOD PRESSURE INCREASED [None]
  - BLOOD TRIGLYCERIDES INCREASED [None]
  - CERUMEN IMPACTION [None]
  - CORONARY ARTERY OCCLUSION [None]
  - DEEP VEIN THROMBOSIS [None]
  - DEPRESSION [None]
  - DRUG HYPERSENSITIVITY [None]
  - DRUG INEFFECTIVE [None]
  - DYSPEPSIA [None]
  - FATIGUE [None]
  - FUNGAL INFECTION [None]
  - GASTROOESOPHAGEAL REFLUX DISEASE [None]
  - GROIN PAIN [None]
  - HEADACHE [None]
  - INSOMNIA [None]
  - INTERMITTENT CLAUDICATION [None]
  - IRRITABLE BOWEL SYNDROME [None]
  - MEMORY IMPAIRMENT [None]
  - OEDEMA [None]
  - OSTEOARTHRITIS [None]
  - OSTEOPOROSIS [None]
  - PERIPHERAL VASCULAR DISORDER [None]
  - PRURITUS [None]
  - URINARY INCONTINENCE [None]
